FAERS Safety Report 15748982 (Version 1)
Quarter: 2018Q4

REPORT INFORMATION
  Report Type: Spontaneous
  Country: IT (occurrence: IT)
  Receive Date: 20181221
  Receipt Date: 20181221
  Transmission Date: 20190205
  Serious: Yes (Other)
  Sender: FDA-Public Use
  Company Number: IT-ROCHE-2232441

PATIENT
  Age: 89 Year
  Sex: Male

DRUGS (3)
  1. GAZYVARO [Suspect]
     Active Substance: OBINUTUZUMAB
     Indication: CHRONIC LYMPHOCYTIC LEUKAEMIA
     Route: 065
  2. CLORAMBUCILE [Concomitant]
     Indication: CHRONIC LYMPHOCYTIC LEUKAEMIA
  3. GAZYVARO [Suspect]
     Active Substance: OBINUTUZUMAB
     Route: 065

REACTIONS (2)
  - Hyperpyrexia [Recovering/Resolving]
  - Transaminases abnormal [Recovering/Resolving]

NARRATIVE: CASE EVENT DATE: 20181211
